FAERS Safety Report 13403194 (Version 1)
Quarter: 2017Q2

REPORT INFORMATION
  Report Type: Spontaneous
  Country: US (occurrence: US)
  Receive Date: 20170404
  Receipt Date: 20170404
  Transmission Date: 20170830
  Serious: Yes (Other)
  Sender: FDA-Public Use
  Company Number: US-ROCHE-1756576

PATIENT
  Sex: Female

DRUGS (10)
  1. EYEVITE [Concomitant]
  2. METOPROLOL. [Concomitant]
     Active Substance: METOPROLOL
  3. ERYTHROMYCIN. [Concomitant]
     Active Substance: ERYTHROMYCIN
  4. VALIUM [Concomitant]
     Active Substance: DIAZEPAM
  5. AVASTIN [Suspect]
     Active Substance: BEVACIZUMAB
     Indication: PRODUCT USED FOR UNKNOWN INDICATION
     Dosage: IN RIGHT EYE
     Route: 065
  6. PERCOCET [Concomitant]
     Active Substance: ACETAMINOPHEN\OXYCODONE HYDROCHLORIDE
  7. SYSTANE (HYPROMELLOSE 2910 (4000 MPA.S)) [Concomitant]
     Active Substance: HYPROMELLOSE 2910 (4000 MPA.S)
  8. ASPRIN [Concomitant]
     Active Substance: ASPIRIN
  9. ELIQUIS [Concomitant]
     Active Substance: APIXABAN
  10. EYLEA [Suspect]
     Active Substance: AFLIBERCEPT
     Indication: NEOVASCULAR AGE-RELATED MACULAR DEGENERATION
     Dosage: LAST DOSE ON 23/FEB/2016
     Route: 031
     Dates: start: 20150414

REACTIONS (2)
  - Retinal detachment [Unknown]
  - Retinal haemorrhage [Unknown]
